FAERS Safety Report 6762461-2 (Version None)
Quarter: 2010Q2

REPORT INFORMATION
  Report Type: 
  Country: None (occurrence: None)
  Receive Date: 20100609
  Receipt Date: 20100605
  Transmission Date: 20101027
  Serious: Yes (Death, Other)
  Sender: FDA-Public Use
  Company Number: US-BAYER-201027813GPV

PATIENT

DRUGS (7)
  1. FLUDARABINE [Suspect]
     Indication: HAEMATOLOGICAL MALIGNANCY
     Dosage: AS USED: 30 MG/M2
     Route: 042
  2. MELPHALAN HYDROCHLORIDE [Suspect]
     Indication: HAEMATOLOGICAL MALIGNANCY
     Dosage: ON DAY -2
     Route: 042
  3. ANTI-THYMOCYTE GLOBULIN NOS [Suspect]
     Indication: HAEMATOLOGICAL MALIGNANCY
     Dosage: ON DAYS -7; -5; -3, AND -1
  4. TACROLIMUS [Concomitant]
     Indication: PROPHYLAXIS AGAINST GRAFT VERSUS HOST DISEASE
     Dosage: STARTED ON DAY -3
     Route: 048
  5. SIROLIMUS [Concomitant]
     Indication: PROPHYLAXIS AGAINST GRAFT VERSUS HOST DISEASE
     Dosage: ON DAY -3
  6. SIROLIMUS [Concomitant]
  7. FILGRASTIM [Concomitant]

REACTIONS (2)
  - MULTI-ORGAN FAILURE [None]
  - SEPSIS [None]
